FAERS Safety Report 13252911 (Version 1)
Quarter: 2017Q1

REPORT INFORMATION
  Report Type: Spontaneous
  Country: IT (occurrence: IT)
  Receive Date: 20170220
  Receipt Date: 20170220
  Transmission Date: 20170428
  Serious: Yes (Life-Threatening)
  Sender: FDA-Public Use
  Company Number: PHHY2017IT025131

PATIENT
  Age: 68 Year
  Sex: Female

DRUGS (4)
  1. AMIODARONE [Suspect]
     Active Substance: AMIODARONE
     Dosage: 200 MG, UNK
     Route: 048
     Dates: start: 20170124, end: 20170124
  2. CORDARONE [Suspect]
     Active Substance: AMIODARONE HYDROCHLORIDE
     Indication: PRODUCT USED FOR UNKNOWN INDICATION
     Dosage: 600 MG, ONCE/SINGLE
     Route: 042
     Dates: start: 20170119, end: 20170119
  3. GLIVEC [Suspect]
     Active Substance: IMATINIB MESYLATE
     Indication: CHRONIC MYELOID LEUKAEMIA
     Dosage: 400 MG, QD
     Route: 048
  4. AMIODARONE [Suspect]
     Active Substance: AMIODARONE
     Indication: PRODUCT USED FOR UNKNOWN INDICATION
     Dosage: 600 MG, QD
     Route: 048
     Dates: start: 20170120

REACTIONS (3)
  - Cardiac arrest [Recovering/Resolving]
  - Torsade de pointes [Recovering/Resolving]
  - Electrocardiogram QT prolonged [Recovering/Resolving]

NARRATIVE: CASE EVENT DATE: 20170124
